FAERS Safety Report 4333879-2 (Version None)
Quarter: 2004Q2

REPORT INFORMATION
  Report Type: 
  Country: None (occurrence: None)
  Receive Date: 20040402
  Receipt Date: 20040402
  Transmission Date: 20050107
  Serious: Yes (Life-Threatening)
  Sender: FDA-Public Use
  Company Number: None

PATIENT
  Sex: Female
  Weight: 76.6579 kg

DRUGS (7)
  1. GLUCOPHAGE XR [Suspect]
     Indication: DIABETES MELLITUS
     Dosage: 750 MG QD ORAL
     Route: 048
     Dates: start: 20031024, end: 20040329
  2. AVAPRO [Concomitant]
  3. INDAPAMIDE [Concomitant]
  4. GLUCOTROL XL [Concomitant]
  5. BISOPROLOL [Concomitant]
  6. HUMOLOG [Concomitant]
  7. ASPIRIN [Concomitant]

REACTIONS (5)
  - ABDOMINAL DISTENSION [None]
  - ABDOMINAL PAIN [None]
  - ASTHENIA [None]
  - FAECES PALE [None]
  - FEELING ABNORMAL [None]
